FAERS Safety Report 7094065-9 (Version None)
Quarter: 2010Q4

REPORT INFORMATION
  Report Type: 
  Country: None (occurrence: None)
  Receive Date: 20101109
  Receipt Date: 20101109
  Transmission Date: 20110411
  Serious: Yes (Life-Threatening, Hospitalization, Disabling, Other)
  Sender: FDA-Public Use
  Company Number: None

PATIENT
  Age: 18 Year
  Sex: Male
  Weight: 36.2878 kg

DRUGS (1)
  1. FENTANYL DONT KNOW FOR SURE DONT KNOW FOR SURE [Suspect]
     Indication: SURGERY
     Dosage: DURING SURGERY OR PROCEDURE COUPLE TIMES IV MINUTES OR MORE
     Route: 042
     Dates: start: 20101102, end: 20101102

REACTIONS (5)
  - ANURIA [None]
  - CONSTIPATION [None]
  - EMOTIONAL DISTRESS [None]
  - HYPOTENSION [None]
  - PALLOR [None]
